FAERS Safety Report 12473070 (Version 2)
Quarter: 2016Q2

REPORT INFORMATION
  Report Type: Report from Study
  Country: US (occurrence: US)
  Receive Date: 20160616
  Receipt Date: 20160624
  Transmission Date: 20160815
  Serious: Yes (Other)
  Sender: FDA-Public Use
  Company Number: US-MALLINCKRODT-T201602332

PATIENT
  Sex: Female
  Weight: 81 kg

DRUGS (1)
  1. REPOSITORY CORTICOTROPIN INJECTION [Suspect]
     Active Substance: CORTICOTROPIN
     Indication: NEPHROTIC SYNDROME
     Dosage: 40 UNITS EVERY OTHER DAY
     Route: 058
     Dates: start: 20160226, end: 20160601

REACTIONS (5)
  - Oedema peripheral [Recovering/Resolving]
  - Weight increased [Recovered/Resolved]
  - Swelling face [Unknown]
  - Hypertension [Recovered/Resolved]
  - Swelling [Recovering/Resolving]

NARRATIVE: CASE EVENT DATE: 2016
